FAERS Safety Report 11029038 (Version 5)
Quarter: 2018Q1

REPORT INFORMATION
  Report Type: Spontaneous
  Country: US (occurrence: US)
  Receive Date: 20150414
  Receipt Date: 20180307
  Transmission Date: 20180508
  Serious: Yes (Hospitalization)
  Sender: FDA-Public Use
  Company Number: US-ASTRAZENECA-2014SE63277

PATIENT
  Age: 722 Month
  Sex: Female
  Weight: 87.5 kg

DRUGS (36)
  1. ACARBOSE. [Interacting]
     Active Substance: ACARBOSE
     Route: 065
  2. ZYRTEC [Concomitant]
     Active Substance: CETIRIZINE HYDROCHLORIDE
     Indication: HYPERSENSITIVITY
  3. NORVASC [Concomitant]
     Active Substance: AMLODIPINE BESYLATE
  4. FLONASE [Concomitant]
     Active Substance: FLUTICASONE PROPIONATE
     Indication: HYPERSENSITIVITY
     Dosage: TWO TIMES A DAY
     Route: 045
  5. SYMLINPEN [Interacting]
     Active Substance: PRAMLINTIDE ACETATE
     Indication: TYPE 2 DIABETES MELLITUS
     Route: 058
     Dates: start: 201002, end: 201003
  6. SYMLINPEN [Interacting]
     Active Substance: PRAMLINTIDE ACETATE
     Indication: TYPE 2 DIABETES MELLITUS
     Route: 058
     Dates: start: 201003, end: 201004
  7. SYMLINPEN [Interacting]
     Active Substance: PRAMLINTIDE ACETATE
     Indication: TYPE 2 DIABETES MELLITUS
     Route: 058
     Dates: start: 201004, end: 201005
  8. SYMLINPEN [Interacting]
     Active Substance: PRAMLINTIDE ACETATE
     Indication: TYPE 2 DIABETES MELLITUS
     Dosage: 60 MCG TWO TIMES A DAY
     Route: 058
     Dates: start: 201203
  9. LANTUS [Concomitant]
     Active Substance: INSULIN GLARGINE
     Indication: TYPE 2 DIABETES MELLITUS
     Dosage: 20 UNITS, BID
     Route: 058
  10. POTASSIUM [Concomitant]
     Active Substance: POTASSIUM
     Indication: HYPOKALAEMIA
  11. SYMLINPEN [Interacting]
     Active Substance: PRAMLINTIDE ACETATE
     Indication: TYPE 2 DIABETES MELLITUS
     Route: 058
     Dates: start: 200912
  12. LANTUS [Concomitant]
     Active Substance: INSULIN GLARGINE
     Indication: TYPE 2 DIABETES MELLITUS
     Dosage: 10 UNITS, AT NIGHT
     Route: 058
  13. VITAMIN B12 [Concomitant]
     Active Substance: CYANOCOBALAMIN
     Indication: ASTHENIA
  14. AMLODIPINE [Concomitant]
     Active Substance: AMLODIPINE BESYLATE
     Indication: HYPERTENSION
     Dates: start: 1997
  15. SYMLINPEN [Interacting]
     Active Substance: PRAMLINTIDE ACETATE
     Indication: TYPE 2 DIABETES MELLITUS
     Dosage: 120 THREE TIMES A DAY
     Route: 058
  16. ZETIA [Concomitant]
     Active Substance: EZETIMIBE
     Indication: BLOOD TRIGLYCERIDES ABNORMAL
  17. LEVALBUTEROL. [Concomitant]
     Active Substance: LEVALBUTEROL
     Indication: THROAT TIGHTNESS
     Dosage: 0.1% AS REQUIRED
  18. SYMLINPEN [Suspect]
     Active Substance: PRAMLINTIDE ACETATE
     Indication: TYPE 2 DIABETES MELLITUS
     Route: 058
  19. SYMLINPEN [Interacting]
     Active Substance: PRAMLINTIDE ACETATE
     Indication: TYPE 2 DIABETES MELLITUS
     Dosage: 1 MG/2.7 ML 2 PEN PACK; 2.7 ML TWO TIMES A DAY
     Route: 058
     Dates: start: 2009
  20. SYMLINPEN [Interacting]
     Active Substance: PRAMLINTIDE ACETATE
     Indication: TYPE 2 DIABETES MELLITUS
     Route: 058
     Dates: start: 201001
  21. POTASSIUM [Concomitant]
     Active Substance: POTASSIUM
     Indication: HYPOKALAEMIA
  22. B6 [Concomitant]
     Active Substance: PYRIDOXINE HYDROCHLORIDE
     Indication: ASTHENIA
  23. VITAMIN C [Concomitant]
     Active Substance: ASCORBIC ACID
     Indication: ASTHENIA
  24. APIDRA [Concomitant]
     Active Substance: INSULIN GLULISINE
  25. SYMLINPEN [Interacting]
     Active Substance: PRAMLINTIDE ACETATE
     Indication: TYPE 2 DIABETES MELLITUS
     Route: 058
     Dates: start: 201005
  26. SYMLINPEN [Interacting]
     Active Substance: PRAMLINTIDE ACETATE
     Indication: TYPE 2 DIABETES MELLITUS
     Route: 058
     Dates: end: 201201
  27. SYMLINPEN [Interacting]
     Active Substance: PRAMLINTIDE ACETATE
     Indication: TYPE 2 DIABETES MELLITUS
     Route: 058
     Dates: start: 201203
  28. ALVESCO [Concomitant]
     Active Substance: CICLESONIDE
  29. ALLEGRA [Concomitant]
     Active Substance: FEXOFENADINE HYDROCHLORIDE
  30. FOLIC ACID. [Concomitant]
     Active Substance: FOLIC ACID
     Indication: DIABETES MELLITUS
  31. FOLIC ACID. [Concomitant]
     Active Substance: FOLIC ACID
     Indication: DIABETES MELLITUS
  32. SYMLINPEN [Interacting]
     Active Substance: PRAMLINTIDE ACETATE
     Indication: TYPE 2 DIABETES MELLITUS
     Route: 058
     Dates: start: 200901
  33. HUMALOG [Concomitant]
     Active Substance: INSULIN LISPRO
     Indication: TYPE 2 DIABETES MELLITUS
     Dosage: 7-9 UNITS VASE ON SLIDING SCLAE INSULIN, TID, DECREASD TO 5 UNITS, TID, UPON RESTARTING SYMLIN
     Route: 058
  34. HUMALOG [Concomitant]
     Active Substance: INSULIN LISPRO
     Indication: TYPE 2 DIABETES MELLITUS
     Dosage: 14 UNITS, BID
     Route: 058
  35. AMLODIPINE [Concomitant]
     Active Substance: AMLODIPINE BESYLATE
     Dates: start: 1997
  36. IRON [Concomitant]
     Active Substance: IRON
     Indication: ANAEMIA
     Dosage: 2 TABLETS IN THE MORNING AND 2 TABLETS AT NIGHT

REACTIONS (33)
  - Hyperglycaemia [Unknown]
  - Seasonal allergy [Unknown]
  - Hypertension [Unknown]
  - Urticaria [Recovered/Resolved]
  - Weight increased [Unknown]
  - Flatulence [Not Recovered/Not Resolved]
  - Osteoarthritis [Unknown]
  - Anaemia [Unknown]
  - Asthma [Unknown]
  - Abdominal pain upper [Not Recovered/Not Resolved]
  - Hypoglycaemia [Recovered/Resolved]
  - Sneezing [Unknown]
  - Feeling abnormal [Recovered/Resolved]
  - Pain [Unknown]
  - Hepatic enzyme increased [Unknown]
  - Pruritus [Unknown]
  - Tremor [Unknown]
  - Drug interaction [Unknown]
  - Diarrhoea [Recovered/Resolved]
  - Erythema [Unknown]
  - Blood glucose decreased [Recovered/Resolved]
  - Body height decreased [Unknown]
  - Fatigue [Not Recovered/Not Resolved]
  - Blood potassium decreased [Unknown]
  - Drug dose omission [Unknown]
  - Expired product administered [Unknown]
  - Hypersensitivity [Unknown]
  - Weight decreased [Unknown]
  - Nausea [Recovered/Resolved]
  - Visual impairment [Unknown]
  - Blood glucose increased [Recovered/Resolved]
  - Serum ferritin decreased [Unknown]
  - Product quality issue [Unknown]

NARRATIVE: CASE EVENT DATE: 200901
